FAERS Safety Report 19083499 (Version 2)
Quarter: 2023Q2

REPORT INFORMATION
  Report Type: Spontaneous
  Country: US (occurrence: US)
  Receive Date: 20210401
  Receipt Date: 20230512
  Transmission Date: 20230722
  Serious: Yes (Hospitalization)
  Sender: FDA-Public Use
  Company Number: US-MYLANLABS-2021M1019447

PATIENT
  Age: 11 Month
  Sex: Female

DRUGS (5)
  1. TACROLIMUS [Interacting]
     Active Substance: TACROLIMUS
     Indication: Prophylaxis against graft versus host disease
     Dosage: 1.2 MILLIGRAM, BID
     Route: 065
     Dates: start: 2020
  2. TACROLIMUS [Interacting]
     Active Substance: TACROLIMUS
     Dosage: 1.4 MILLIGRAM, BID
     Route: 065
     Dates: start: 2020
  3. TACROLIMUS [Interacting]
     Active Substance: TACROLIMUS
     Dosage: 2 MILLIGRAM, BID
     Route: 065
     Dates: start: 202004, end: 202004
  4. VORICONAZOLE [Interacting]
     Active Substance: VORICONAZOLE
     Indication: Pulmonary mass
     Dosage: UNK
     Route: 065
     Dates: start: 2020
  5. VORICONAZOLE [Interacting]
     Active Substance: VORICONAZOLE
     Indication: Pyrexia

REACTIONS (4)
  - Toxicity to various agents [Recovered/Resolved]
  - Septic shock [Recovering/Resolving]
  - Drug interaction [Recovering/Resolving]
  - Chemotherapeutic drug level above therapeutic [Recovered/Resolved]

NARRATIVE: CASE EVENT DATE: 20200401
